FAERS Safety Report 7438958-9 (Version None)
Quarter: 2011Q2

REPORT INFORMATION
  Report Type: 
  Country: None (occurrence: None)
  Receive Date: 20110426
  Receipt Date: 20110420
  Transmission Date: 20111010
  Serious: Yes (Death, Hospitalization)
  Sender: FDA-Public Use
  Company Number: US-BRISTOL-MYERS SQUIBB COMPANY-15600125

PATIENT
  Age: 83 Year
  Sex: Male

DRUGS (19)
  1. COREG [Concomitant]
     Route: 048
     Dates: start: 20080305
  2. PREDNISONE [Concomitant]
     Dosage: 45 DAYS
     Route: 048
  3. IPILIMUMAB [Suspect]
     Indication: MALIGNANT MELANOMA
     Route: 042
     Dates: start: 20110126, end: 20110216
  4. NEURONTIN [Concomitant]
     Route: 048
  5. ZINC OXIDE [Concomitant]
     Dosage: TO PERITONEUM
     Route: 061
  6. METHYLPREDNISOLONE [Concomitant]
  7. ZOFRAN [Concomitant]
     Route: 048
  8. HYDROCHLOROTHIAZIDE [Concomitant]
     Route: 048
     Dates: start: 20080305
  9. ACETAMINOPHEN [Concomitant]
     Route: 048
  10. METRONIDAZOLE [Concomitant]
  11. NORVASC [Concomitant]
     Route: 048
  12. MULTI-VITAMIN [Concomitant]
     Dosage: TABS
     Route: 048
     Dates: start: 20080305
  13. SODIUM CHLORIDE [Concomitant]
  14. BUDESONIDE [Concomitant]
     Dosage: ALSO 9 MG
     Route: 048
  15. IMODIUM [Concomitant]
     Dosage: CAP
     Route: 048
  16. PROTONIX [Concomitant]
     Dosage: TAB
     Route: 048
  17. FLOMAX [Concomitant]
     Route: 048
     Dates: start: 20080305
  18. GABAPENTIN [Concomitant]
     Route: 048
     Dates: start: 20110126
  19. FRAGMIN [Concomitant]
     Dosage: 1 DF = 15000UINTS, INJECTED EACH EVENING
     Route: 058

REACTIONS (8)
  - THROMBOCYTOPENIA [None]
  - SYNCOPE [None]
  - SEPSIS [None]
  - DEEP VEIN THROMBOSIS [None]
  - BACTERAEMIA [None]
  - GASTROINTESTINAL HAEMORRHAGE [None]
  - NEOPLASM MALIGNANT [None]
  - COLITIS [None]
